FAERS Safety Report 9918817 (Version 1)
Quarter: 2014Q1

REPORT INFORMATION
  Report Type: Spontaneous
  Country: US (occurrence: US)
  Receive Date: 20140224
  Receipt Date: 20140224
  Transmission Date: 20141002
  Serious: No
  Sender: FDA-Public Use
  Company Number: US-B.I. PHARMACEUTICALS,INC./RIDGEFIELD-2014-BI-07384BP

PATIENT
  Age: 85 Year
  Sex: Male

DRUGS (2)
  1. COMBIVENT [Suspect]
     Indication: PNEUMONIA
     Dosage: STRENGTH: 20 MCG / 100 MCG; DAILY DOSE: 80 MCG/400 MCG
     Route: 055
     Dates: start: 20140214
  2. UNKNOWN ANTIBIOTIC [Concomitant]
     Indication: PNEUMONIA
     Route: 048
     Dates: start: 20140214

REACTIONS (4)
  - Local swelling [Unknown]
  - Testicular swelling [Unknown]
  - Local swelling [Unknown]
  - Off label use [Unknown]
